FAERS Safety Report 10265317 (Version 1)
Quarter: 2014Q2

REPORT INFORMATION
  Report Type: Spontaneous
  Country: US (occurrence: US)
  Receive Date: 20140627
  Receipt Date: 20140627
  Transmission Date: 20141212
  Serious: Yes (Other)
  Sender: FDA-Public Use
  Company Number: US-ACTAVIS-2014-13488

PATIENT
  Age: 33 Year
  Sex: Male

DRUGS (2)
  1. LORAZEPAM (WATSON LABORATORIES) [Suspect]
     Indication: BIPOLAR DISORDER
     Dosage: 2 TABLETS DAILY
     Route: 048
     Dates: start: 20140531, end: 20140601
  2. LORAZEPAM (WATSON LABORATORIES) [Suspect]
     Indication: AUTISM

REACTIONS (3)
  - Mania [Recovered/Resolved]
  - Drug ineffective [Recovered/Resolved]
  - Abnormal behaviour [Recovered/Resolved]
